FAERS Safety Report 6447091-4 (Version None)
Quarter: 2009Q4

REPORT INFORMATION
  Report Type: 
  Country: None (occurrence: None)
  Receive Date: 20091119
  Receipt Date: 20091118
  Transmission Date: 20100525
  Serious: No
  Sender: FDA-Public Use
  Company Number: US-B.I. PHARMACEUTICALS,INC./RIDGEFIELD-2009-BP-12299BP

PATIENT
  Sex: Female

DRUGS (15)
  1. SPIRIVA [Suspect]
     Indication: CHRONIC OBSTRUCTIVE PULMONARY DISEASE
     Route: 055
     Dates: start: 20090601
  2. ALBUTEROL [Suspect]
     Indication: CHRONIC OBSTRUCTIVE PULMONARY DISEASE
     Route: 055
  3. CARVEDILOL [Concomitant]
     Dosage: 6.25 MG
  4. TRIAMTERENE [Concomitant]
     Dosage: 37.5 MG
  5. SIMVASTATIN [Concomitant]
     Dosage: 20 MG
  6. PLAVIX [Concomitant]
     Dosage: 75 MG
  7. PRANDIN [Concomitant]
     Dosage: 1.5 MG
  8. LEVEMIR [Concomitant]
  9. XALATAIN [Concomitant]
  10. TOPICORT [Concomitant]
  11. ASPIRIN [Concomitant]
     Dosage: 325 MG
  12. M.V.I. [Concomitant]
  13. ADVAIR DISKUS 100/50 [Concomitant]
  14. TYLENOL (CAPLET) [Concomitant]
     Dosage: 650 MG
  15. PRO-AIR [Concomitant]

REACTIONS (2)
  - NERVOUSNESS [None]
  - TREMOR [None]
